FAERS Safety Report 5828446-5 (Version None)
Quarter: 2008Q3

REPORT INFORMATION
  Report Type: 
  Country: None (occurrence: None)
  Receive Date: 20080731
  Receipt Date: 20080721
  Transmission Date: 20090109
  Serious: Yes (Other)
  Sender: FDA-Public Use
  Company Number: CA-WATSON-2008-04432

PATIENT
  Sex: Female

DRUGS (1)
  1. MINOCYCLINE HYDROCHLORIDE (WATSON LABORATORIES) [Suspect]
     Indication: DRUG USE FOR UNKNOWN INDICATION
     Dosage: UNK
     Route: 065

REACTIONS (4)
  - DRUG RASH WITH EOSINOPHILIA AND SYSTEMIC SYMPTOMS [None]
  - HYPOTHYROIDISM [None]
  - POLYGLANDULAR AUTOIMMUNE SYNDROME TYPE III [None]
  - TYPE 1 DIABETES MELLITUS [None]
